FAERS Safety Report 8024207-X (Version None)
Quarter: 2012Q1

REPORT INFORMATION
  Report Type: 
  Country: None (occurrence: None)
  Receive Date: 20120105
  Receipt Date: 20120101
  Transmission Date: 20120608
  Serious: Yes (Other)
  Sender: FDA-Public Use
  Company Number: PHHY2012US000504

PATIENT

DRUGS (1)
  1. GLEEVEC [Suspect]
     Indication: POLYCYTHAEMIA VERA
     Dosage: 400 MG, DAILY

REACTIONS (2)
  - TRANSIENT ISCHAEMIC ATTACK [None]
  - PLATELET COUNT INCREASED [None]
